FAERS Safety Report 21131904 (Version 1)
Quarter: 2022Q3

REPORT INFORMATION
  Report Type: Spontaneous
  Country: FR (occurrence: FR)
  Receive Date: 20220726
  Receipt Date: 20220726
  Transmission Date: 20221027
  Serious: Yes (Death)
  Sender: FDA-Public Use
  Company Number: None

PATIENT
  Age: 73 Year
  Sex: Male
  Weight: 120 kg

DRUGS (6)
  1. TECHNETIUM TC-99M ALBUMIN AGGREGATED [Suspect]
     Active Substance: TECHNETIUM TC-99M ALBUMIN AGGREGATED
     Indication: Ventilation/perfusion scan
     Route: 040
     Dates: start: 20220701
  2. nadolol 80 mg [Concomitant]
     Indication: Product used for unknown indication
     Dosage: IN THE MORNING
     Route: 065
  3. perindopril 4 mg [Concomitant]
     Indication: Product used for unknown indication
     Dosage: IN THE MORNING
     Route: 065
  4. RIFAXIMIN [Concomitant]
     Active Substance: RIFAXIMIN
     Indication: Product used for unknown indication
     Dosage: MORNING AND EVENING
     Route: 065
  5. sildnenafil 20 mg [Concomitant]
     Indication: Product used for unknown indication
     Dosage: MORNING, NOON, EVENING
     Route: 065
  6. AMBRISENTAN [Concomitant]
     Active Substance: AMBRISENTAN
     Indication: Product used for unknown indication
     Dosage: IN THE MORNING
     Route: 065

REACTIONS (1)
  - Cardiac arrest [Fatal]

NARRATIVE: CASE EVENT DATE: 20220701
